FAERS Safety Report 25352240 (Version 1)
Quarter: 2025Q2

REPORT INFORMATION
  Report Type: Spontaneous
  Country: JP (occurrence: JP)
  Receive Date: 20250523
  Receipt Date: 20250523
  Transmission Date: 20250716
  Serious: Yes (Death)
  Sender: MYLAN
  Company Number: JP-MYLANLABS-2025M1041916

PATIENT
  Age: 65 Year
  Sex: Male
  Weight: 59 kg

DRUGS (7)
  1. VERAPAMIL [Interacting]
     Active Substance: VERAPAMIL HYDROCHLORIDE
     Indication: Supraventricular tachycardia
  2. VERAPAMIL [Interacting]
     Active Substance: VERAPAMIL HYDROCHLORIDE
     Indication: Supraventricular tachycardia
  3. RIFAMPIN [Interacting]
     Active Substance: RIFAMPIN
     Indication: Product used for unknown indication
  4. ISONIAZID [Concomitant]
     Active Substance: ISONIAZID
     Indication: Tuberculous pleurisy
  5. ETHAMBUTOL [Concomitant]
     Active Substance: ETHAMBUTOL HYDROCHLORIDE
     Indication: Tuberculous pleurisy
  6. PYRAZINAMIDE [Concomitant]
     Active Substance: PYRAZINAMIDE
     Indication: Tuberculous pleurisy
  7. PACLITAXEL [Concomitant]
     Active Substance: PACLITAXEL
     Indication: Small cell lung cancer

REACTIONS (2)
  - Supraventricular tachycardia [Fatal]
  - Drug interaction [Unknown]
